FAERS Safety Report 7297567-5 (Version None)
Quarter: 2011Q1

REPORT INFORMATION
  Report Type: 
  Country: None (occurrence: None)
  Receive Date: 20110216
  Receipt Date: 20110202
  Transmission Date: 20110831
  Serious: Yes (Other)
  Sender: FDA-Public Use
  Company Number: US-CELGENEUS-163-21880-10111054

PATIENT
  Sex: Female

DRUGS (1)
  1. REVLIMID [Suspect]
     Indication: MULTIPLE MYELOMA
     Route: 048
     Dates: start: 20100901

REACTIONS (6)
  - DIARRHOEA [None]
  - VITREOUS FLOATERS [None]
  - CHEST PAIN [None]
  - RETINAL TEAR [None]
  - DRY EYE [None]
  - VISION BLURRED [None]
